FAERS Safety Report 4517101-X (Version None)
Quarter: 2004Q4

REPORT INFORMATION
  Report Type: 
  Country: None (occurrence: None)
  Receive Date: 20041202
  Receipt Date: 20041124
  Transmission Date: 20050328
  Serious: Yes (Other)
  Sender: FDA-Public Use
  Company Number: JP-ABBOTT-04P-087-0281439-00

PATIENT
  Age: 67 Year
  Sex: Female

DRUGS (3)
  1. VASOLAN [Suspect]
     Indication: SUPRAVENTRICULAR TACHYCARDIA
     Route: 048
     Dates: start: 20031224, end: 20040326
  2. VASOLAN [Suspect]
     Indication: MYOCARDIAL ISCHAEMIA
     Route: 048
     Dates: start: 20031209, end: 20031223
  3. PRAVASTATIN SODIUM [Concomitant]
     Indication: HYPERLIPIDAEMIA
     Route: 048
     Dates: start: 20031209

REACTIONS (2)
  - HEPATIC FUNCTION ABNORMAL [None]
  - HEPATOTOXICITY [None]
